FAERS Safety Report 12503689 (Version 2)
Quarter: 2016Q2

REPORT INFORMATION
  Report Type: Spontaneous
  Country: JP (occurrence: JP)
  Receive Date: 20160628
  Receipt Date: 20160629
  Transmission Date: 20160815
  Serious: No
  Sender: FDA-Public Use
  Company Number: JP-ELI_LILLY_AND_COMPANY-JP201606006642

PATIENT
  Age: 67 Year
  Sex: Male

DRUGS (2)
  1. MELEX [Concomitant]
     Indication: DEPRESSION
     Dosage: UNK, BID
     Route: 048
  2. ZALUTIA [Suspect]
     Active Substance: TADALAFIL
     Indication: POLLAKIURIA
     Dosage: 5 MG, QD
     Route: 048
     Dates: start: 20160411, end: 20160601

REACTIONS (1)
  - Vision blurred [Recovering/Resolving]

NARRATIVE: CASE EVENT DATE: 20160531
